FAERS Safety Report 24189371 (Version 1)
Quarter: 2024Q3

REPORT INFORMATION
  Report Type: Spontaneous
  Country: GB (occurrence: GB)
  Receive Date: 20240808
  Receipt Date: 20240808
  Transmission Date: 20241017
  Serious: Yes (Other)
  Sender: MYLAN
  Company Number: GB-MYLANLABS-2024M1061217

PATIENT
  Age: 43 Year
  Sex: Female

DRUGS (7)
  1. CLOZARIL [Suspect]
     Active Substance: CLOZAPINE
     Indication: Schizoaffective disorder
     Dosage: 300 MILLIGRAM, QD (50MG AM AND 250MG PM)
     Route: 048
     Dates: start: 20220705
  2. PROCYCLIDINE [Concomitant]
     Active Substance: PROCYCLIDINE
     Dosage: 10 MILLIGRAM, QD (ONCE DAILY)
     Route: 048
  3. MELATONIN [Concomitant]
     Active Substance: MELATONIN
     Dosage: UNK, PRN 2-4 MG, (NOCTE PRN)
     Route: 048
  4. OMEPRAZOLE [Concomitant]
     Active Substance: OMEPRAZOLE
     Dosage: 20 MILLIGRAM, QD (ONCE DAILY)
     Route: 048
  5. FOLIC ACID [Concomitant]
     Active Substance: FOLIC ACID
     Dosage: 5 MILLIGRAM, QD (ONCE DAILY)
     Route: 048
  6. LACTULOSE [Concomitant]
     Active Substance: LACTULOSE
     Dosage: UNK, BID (5-10 ML)
     Route: 048
  7. SENNA LEAF [Concomitant]
     Active Substance: SENNA LEAF
     Dosage: 30 MILLIGRAM, PM (NOCTE)
     Route: 048

REACTIONS (3)
  - Eosinophilia [Recovered/Resolved]
  - Eosinophil count decreased [Recovered/Resolved]
  - Off label use [Unknown]

NARRATIVE: CASE EVENT DATE: 20220705
